FAERS Safety Report 25690328 (Version 1)
Quarter: 2025Q3

REPORT INFORMATION
  Report Type: Spontaneous
  Country: US (occurrence: None)
  Receive Date: 20250815
  Receipt Date: 20250815
  Transmission Date: 20251020
  Serious: Yes (Life-Threatening, Hospitalization, Disabling, Other)
  Sender: FDA-CTU
  Company Number: None

PATIENT
  Age: 23 Year
  Sex: Female
  Weight: 56.25 kg

DRUGS (3)
  1. .DELTA.8-TETRAHYDROCANNABINOL\HERBALS [Suspect]
     Active Substance: .DELTA.8-TETRAHYDROCANNABINOL\HERBALS
     Indication: Substance use
     Route: 048
     Dates: start: 20250624
  2. LITHIUM [Concomitant]
     Active Substance: LITHIUM
  3. reperidone injection [Concomitant]

REACTIONS (4)
  - Hallucination [None]
  - Agitation [None]
  - Depression [None]
  - Drug dependence [None]

NARRATIVE: CASE EVENT DATE: 20250626
